FAERS Safety Report 7766782-6 (Version None)
Quarter: 2011Q3

REPORT INFORMATION
  Report Type: 
  Country: None (occurrence: None)
  Receive Date: 20110922
  Receipt Date: 20110328
  Transmission Date: 20111222
  Serious: No
  Sender: FDA-Public Use
  Company Number: US-ASTRAZENECA-2011SE17337

PATIENT
  Age: 16 Year
  Sex: Female
  Weight: 74.8 kg

DRUGS (4)
  1. SEROQUEL [Suspect]
     Indication: DEPRESSION
     Dosage: 500 AT BEDTIME AND 50 MG IN THE MORNING
     Route: 048
     Dates: start: 20080801, end: 20110323
  2. SEROQUEL [Suspect]
     Indication: POST-TRAUMATIC STRESS DISORDER
     Dosage: 500 AT BEDTIME AND 50 MG IN THE MORNING
     Route: 048
     Dates: start: 20080801, end: 20110323
  3. IBUPROFEN [Concomitant]
     Indication: PAIN
  4. ZOLOFT [Concomitant]

REACTIONS (4)
  - AGGRESSION [None]
  - DRUG DOSE OMISSION [None]
  - ABNORMAL BEHAVIOUR [None]
  - INSOMNIA [None]
